FAERS Safety Report 18974115 (Version 1)
Quarter: 2021Q1

REPORT INFORMATION
  Report Type: Spontaneous
  Country: US (occurrence: US)
  Receive Date: 20210305
  Receipt Date: 20210305
  Transmission Date: 20210420
  Serious: Yes (Hospitalization, Other)
  Sender: FDA-Public Use
  Company Number: US-SA-2021SA048060

PATIENT
  Age: 15 Year
  Sex: Female

DRUGS (1)
  1. DOXYLAMINE SUCCINATE. [Suspect]
     Active Substance: DOXYLAMINE SUCCINATE
     Dosage: UNK

REACTIONS (14)
  - Blood prolactin increased [Unknown]
  - Mental disorder [Unknown]
  - C-reactive protein increased [Unknown]
  - Nystagmus [Unknown]
  - Tachypnoea [Unknown]
  - Acute kidney injury [Unknown]
  - Azotaemia [Unknown]
  - Overdose [Unknown]
  - Hyporesponsive to stimuli [Unknown]
  - Pyrexia [Unknown]
  - Somnolence [Unknown]
  - Rash erythematous [Unknown]
  - Toxicity to various agents [Unknown]
  - Blood creatine phosphokinase increased [Unknown]
